FAERS Safety Report 14191201 (Version 1)
Quarter: 2017Q4

REPORT INFORMATION
  Report Type: Spontaneous
  Country: US (occurrence: US)
  Receive Date: 20171115
  Receipt Date: 20171115
  Transmission Date: 20180321
  Serious: Yes (Other)
  Sender: FDA-Public Use
  Company Number: US-MYLANLABS-2017M1053508

PATIENT
  Sex: Female

DRUGS (21)
  1. DOXORUBICIN [Suspect]
     Active Substance: DOXORUBICIN
     Indication: NEUROBLASTOMA
     Dosage: CUMULATIVE DOSE 225MG/M2; ANOTHER DOSE AFTER RECURRENCE OF DISSEMINATED NEUROBLASTOMA
     Route: 065
  2. ETOPOSIDE. [Suspect]
     Active Substance: ETOPOSIDE
     Dosage: 50MG/M2/2
     Route: 048
  3. VORINOSTAT [Suspect]
     Active Substance: VORINOSTAT
     Indication: PALLIATIVE CARE
     Dosage: 100MG/M2/D FOR 14 DAYS/CYCLE
     Route: 065
  4. LENALIDOMIDE [Concomitant]
     Active Substance: LENALIDOMIDE
     Indication: NEUROBLASTOMA
     Dosage: UNK
     Route: 065
  5. DECITABINE. [Suspect]
     Active Substance: DECITABINE
     Indication: PALLIATIVE CARE
     Dosage: 20MG/M2/D FOR 5 DAYS/CYCLE
     Route: 065
  6. VORINOSTAT [Suspect]
     Active Substance: VORINOSTAT
     Route: 065
  7. IRINOTECAN [Concomitant]
     Active Substance: IRINOTECAN
     Indication: NEUROBLASTOMA
     Dosage: UNK
     Route: 065
  8. TOPOTECAN [Concomitant]
     Active Substance: TOPOTECAN HYDROCHLORIDE
     Indication: NEUROBLASTOMA
     Dosage: UNK
     Route: 065
  9. VINCRISTINE [Concomitant]
     Active Substance: VINCRISTINE
     Indication: NEUROBLASTOMA
     Dosage: UNK
     Route: 065
  10. CYCLOPHOSPHAMIDE. [Suspect]
     Active Substance: CYCLOPHOSPHAMIDE
     Dosage: HIGH DOSE
     Route: 065
  11. CISPLATIN. [Concomitant]
     Active Substance: CISPLATIN
     Indication: NEUROBLASTOMA
     Dosage: UNK
     Route: 065
  12. CARBOPLATIN. [Concomitant]
     Active Substance: CARBOPLATIN
     Indication: NEUROBLASTOMA
     Dosage: UNK
     Route: 065
  13. CELECOXIB. [Concomitant]
     Active Substance: CELECOXIB
     Indication: NEUROBLASTOMA
     Dosage: UNK
     Route: 065
  14. ETOPOSIDE. [Suspect]
     Active Substance: ETOPOSIDE
     Indication: PALLIATIVE CARE
     Dosage: 2.55G/M2
     Route: 065
  15. ETOPOSIDE. [Suspect]
     Active Substance: ETOPOSIDE
     Dosage: 2.55G/M2
  16. CYCLOPHOSPHAMIDE. [Suspect]
     Active Substance: CYCLOPHOSPHAMIDE
     Indication: NEUROBLASTOMA
     Dosage: 12.6 G/M2, UNK
     Route: 065
  17. DECITABINE. [Suspect]
     Active Substance: DECITABINE
     Dosage: UNK
     Route: 065
  18. TEMOZOLOMIDE. [Suspect]
     Active Substance: TEMOZOLOMIDE
     Indication: NEUROBLASTOMA
     Dosage: UNK
     Route: 065
  19. ETOPOSIDE. [Suspect]
     Active Substance: ETOPOSIDE
     Indication: NEUROBLASTOMA
     Dosage: 1.2G/M2
     Route: 065
  20. MELPHALAN. [Suspect]
     Active Substance: MELPHALAN
     Indication: NEUROBLASTOMA
     Dosage: UNK
     Route: 065
  21. CYCLOPHOSPHAMIDE. [Suspect]
     Active Substance: CYCLOPHOSPHAMIDE
     Dosage: 34.4G/M2
     Route: 065

REACTIONS (4)
  - Pyrexia [Unknown]
  - Myelodysplastic syndrome [Unknown]
  - Bone marrow failure [Unknown]
  - Pancytopenia [Unknown]
